FAERS Safety Report 13430875 (Version 1)
Quarter: 2017Q2

REPORT INFORMATION
  Report Type: Spontaneous
  Country: US (occurrence: US)
  Receive Date: 20170411
  Receipt Date: 20170411
  Transmission Date: 20170830
  Serious: Yes (Hospitalization)
  Sender: FDA-Public Use
  Company Number: None

PATIENT
  Age: 85 Year
  Sex: Male
  Weight: 67.8 kg

DRUGS (1)
  1. DOXAZOSIN [Suspect]
     Active Substance: DOXAZOSIN\DOXAZOSIN MESYLATE
     Dosage: MG PO
     Route: 048
     Dates: start: 20130510, end: 20130704

REACTIONS (5)
  - Syncope [None]
  - Fall [None]
  - Lower limb fracture [None]
  - Orthostatic hypotension [None]
  - Arthralgia [None]

NARRATIVE: CASE EVENT DATE: 20130704
